FAERS Safety Report 8234787 (Version 5)
Quarter: 2013Q3

REPORT INFORMATION
  Report Type: Spontaneous
  Country: CH (occurrence: CH)
  Receive Date: 20111108
  Receipt Date: 20130924
  Transmission Date: 20140515
  Serious: Yes (Other)
  Sender: FDA-Public Use
  Company Number: CH-JNJFOC-20111101820

PATIENT
  Age: 57 Year
  Sex: Female

DRUGS (10)
  1. PALEXIA [Suspect]
     Indication: RADICULAR PAIN
     Route: 048
     Dates: start: 20111021, end: 20111025
  2. TRAMADOL HYDROCHLORIDE [Concomitant]
     Indication: RADICULAR PAIN
     Dosage: 2/DAY
     Route: 048
     Dates: end: 20111020
  3. TRAMADOL HYDROCHLORIDE [Concomitant]
     Indication: RADICULAR PAIN
     Route: 048
  4. ZALDIAR [Concomitant]
     Route: 048
  5. ZALDIAR [Concomitant]
     Dosage: 1 DF, 2/DAY
     Route: 048
     Dates: end: 20111020
  6. EFFEXOR [Concomitant]
     Indication: DEPRESSION
     Route: 048
  7. ARCOXIA [Concomitant]
     Indication: OSTEOARTHRITIS
     Route: 048
  8. ALLOBARBITAL [Concomitant]
     Indication: PAIN
     Route: 048
  9. DROFENINE HYDROCHLORIDE [Concomitant]
     Indication: PAIN
     Route: 048
  10. PROPYPHENAZONE [Concomitant]
     Indication: PAIN
     Route: 048

REACTIONS (7)
  - Suicidal ideation [Recovered/Resolved]
  - Aggression [Recovered/Resolved]
  - Drug ineffective [Recovered/Resolved]
  - Somnolence [Recovered/Resolved]
  - Dizziness [Recovered/Resolved]
  - Sleep disorder [Recovered/Resolved]
  - Agitation [Recovered/Resolved]
